FAERS Safety Report 9789840 (Version 1)
Quarter: 2013Q4

REPORT INFORMATION
  Report Type: Spontaneous
  Country: IT (occurrence: None)
  Receive Date: 20131227
  Receipt Date: 20131227
  Transmission Date: 20140711
  Serious: Yes (Other)
  Sender: FDA-Public Use
  Company Number: 7258245

PATIENT
  Sex: Female

DRUGS (4)
  1. L-THYROXINE [Suspect]
     Indication: HYPOTHYROIDISM
  2. SOMATROPIN [Suspect]
     Indication: GROWTH HORMONE DEFICIENCY
  3. CALCITRIOL (CALCITRIOL) [Concomitant]
  4. CALCIUM (CALCIUM) [Concomitant]

REACTIONS (2)
  - Congenital osteodystrophy [None]
  - No therapeutic response [None]
